FAERS Safety Report 5703360-4 (Version None)
Quarter: 2008Q2

REPORT INFORMATION
  Report Type: 
  Country: None (occurrence: None)
  Receive Date: 20080411
  Receipt Date: 20080402
  Transmission Date: 20081010
  Serious: Yes (Hospitalization)
  Sender: FDA-Public Use
  Company Number: FR-BOEHRINGER INGELHEIM GMBH, GERMANY-2008-FF-00265FF

PATIENT
  Age: 80 Year
  Sex: Male

DRUGS (5)
  1. JOSIR [Suspect]
     Indication: BENIGN PROSTATIC HYPERPLASIA
     Route: 048
     Dates: start: 20071128, end: 20080116
  2. PROSCAR [Concomitant]
     Indication: BENIGN PROSTATIC HYPERPLASIA
     Route: 048
     Dates: start: 20071128, end: 20080116
  3. PREVISCAN [Concomitant]
  4. CORDARONE [Concomitant]
  5. MONOTILDIEM [Concomitant]

REACTIONS (6)
  - EOSINOPHILIA [None]
  - LEUKOCYTOSIS [None]
  - PURPURA [None]
  - PYREXIA [None]
  - RASH MACULO-PAPULAR [None]
  - RENAL IMPAIRMENT [None]
